FAERS Safety Report 8314894-0 (Version None)
Quarter: 2012Q2

REPORT INFORMATION
  Report Type: 
  Country: None (occurrence: None)
  Receive Date: 20120426
  Receipt Date: 20120418
  Transmission Date: 20120825
  Serious: Yes (Other)
  Sender: FDA-Public Use
  Company Number: US-JNJFOC-20120408439

PATIENT
  Sex: Female
  Weight: 73.48 kg

DRUGS (6)
  1. FOLIC ACID [Concomitant]
     Indication: ARTHRITIS
     Route: 048
  2. PREDNISONE TAB [Concomitant]
     Indication: ARTHRITIS
     Route: 048
     Dates: start: 20070101
  3. KLOR-CON [Concomitant]
     Indication: MINERAL SUPPLEMENTATION
     Route: 048
     Dates: start: 20060101
  4. IRON [Concomitant]
     Indication: MEDICAL DIET
     Route: 048
     Dates: start: 20080101
  5. REMICADE [Suspect]
     Indication: RHEUMATOID ARTHRITIS
     Route: 042
     Dates: start: 20100101
  6. INSULIN [Concomitant]
     Indication: DIABETES MELLITUS
     Route: 058
     Dates: start: 20090101

REACTIONS (2)
  - INTERVERTEBRAL DISC PROTRUSION [None]
  - ADVERSE EVENT [None]
